FAERS Safety Report 11453763 (Version 1)
Quarter: 2015Q3

REPORT INFORMATION
  Report Type: Spontaneous
  Country: US (occurrence: US)
  Receive Date: 20150831
  Receipt Date: 20150831
  Transmission Date: 20151125
  Serious: No
  Sender: FDA-Public Use
  Company Number: US-ELI_LILLY_AND_COMPANY-US201001003892

PATIENT
  Age: 46 Year
  Sex: Female
  Weight: 101 kg

DRUGS (6)
  1. CYMBALTA [Suspect]
     Active Substance: DULOXETINE HYDROCHLORIDE
     Dosage: 120 MG, DAILY (1/D)
     Dates: start: 200903, end: 20091213
  2. CYMBALTA [Suspect]
     Active Substance: DULOXETINE HYDROCHLORIDE
     Dosage: 90 MG, DAILY (1/D)
     Dates: start: 20091214
  3. PROMETRIUM [Concomitant]
     Active Substance: PROGESTERONE
     Indication: HORMONE REPLACEMENT THERAPY
  4. CYMBALTA [Suspect]
     Active Substance: DULOXETINE HYDROCHLORIDE
     Indication: OCCIPITAL NEURALGIA
     Dosage: 1 D/F, UNK
     Dates: start: 2008, end: 200903
  5. TRAMADOL. [Concomitant]
     Active Substance: TRAMADOL
     Indication: OCCIPITAL NEURALGIA
     Dosage: 1 D/F, UNK
     Dates: start: 200910, end: 20091213
  6. ESTROGEN NOS [Concomitant]
     Active Substance: ESTROGENS
     Indication: HORMONE REPLACEMENT THERAPY

REACTIONS (6)
  - Stress [Unknown]
  - Tremor [Recovering/Resolving]
  - Blood pressure increased [Recovered/Resolved]
  - Restlessness [Not Recovered/Not Resolved]
  - Paraesthesia [Not Recovered/Not Resolved]
  - Insomnia [Not Recovered/Not Resolved]

NARRATIVE: CASE EVENT DATE: 200911
